FAERS Safety Report 21776892 (Version 5)
Quarter: 2023Q2

REPORT INFORMATION
  Report Type: Report from Study
  Country: US (occurrence: US)
  Receive Date: 20221226
  Receipt Date: 20230414
  Transmission Date: 20230721
  Serious: No
  Sender: FDA-Public Use
  Company Number: US-002147023-NVSC2022US295168

PATIENT
  Sex: Female

DRUGS (1)
  1. SCEMBLIX [Suspect]
     Active Substance: ASCIMINIB HYDROCHLORIDE
     Indication: Product used for unknown indication
     Dosage: UNK
     Route: 048

REACTIONS (7)
  - Anxiety [Unknown]
  - Abdominal discomfort [Unknown]
  - Malnutrition [Unknown]
  - Nervous system disorder [Unknown]
  - Weight decreased [Unknown]
  - Dyspnoea [Unknown]
  - Drug intolerance [Unknown]
